FAERS Safety Report 25650235 (Version 1)
Quarter: 2025Q3

REPORT INFORMATION
  Report Type: Spontaneous
  Country: US (occurrence: None)
  Receive Date: 20250805
  Receipt Date: 20250805
  Transmission Date: 20251021
  Serious: Yes (Other)
  Sender: FDA-CTU
  Company Number: None

PATIENT
  Age: 44 Year
  Sex: Female
  Weight: 57.6 kg

DRUGS (1)
  1. ROC BARRIER RENEW AM MOISTURIZER SPF 30 [Suspect]
     Active Substance: AVOBENZONE\HOMOSALATE\OCTISALATE\OCTOCRYLENE
     Dates: start: 20250526

REACTIONS (3)
  - Product label issue [None]
  - Product expiration date issue [None]
  - Expired product administered [None]

NARRATIVE: CASE EVENT DATE: 20250526
